FAERS Safety Report 18872989 (Version 1)
Quarter: 2021Q1

REPORT INFORMATION
  Report Type: Spontaneous
  Country: US (occurrence: US)
  Receive Date: 20210210
  Receipt Date: 20210210
  Transmission Date: 20210420
  Serious: Yes (Other)
  Sender: FDA-Public Use
  Company Number: US-PFIZER INC-2021093500

PATIENT

DRUGS (1)
  1. PEGVISOMANT [Suspect]
     Active Substance: PEGVISOMANT
     Dosage: UNK

REACTIONS (4)
  - Gastrointestinal pain [Unknown]
  - Body dysmorphic disorder [Unknown]
  - Weight increased [Unknown]
  - Panniculitis [Unknown]
